FAERS Safety Report 7678401-8 (Version None)
Quarter: 2011Q3

REPORT INFORMATION
  Report Type: 
  Country: None (occurrence: None)
  Receive Date: 20110811
  Receipt Date: 20110808
  Transmission Date: 20111222
  Serious: Yes (Hospitalization)
  Sender: FDA-Public Use
  Company Number: US-ABBOTT-11P-163-0844951-00

PATIENT
  Age: 52 Year
  Sex: Female

DRUGS (3)
  1. PLAQUENIL [Concomitant]
     Indication: PRODUCT USED FOR UNKNOWN INDICATION
  2. HUMIRA [Suspect]
     Indication: RHEUMATOID ARTHRITIS
     Dates: start: 20110803
  3. HYDROCHLOROTHIAZIDE [Concomitant]
     Indication: PRODUCT USED FOR UNKNOWN INDICATION

REACTIONS (7)
  - HYPOAESTHESIA [None]
  - PARAESTHESIA [None]
  - MALAISE [None]
  - ASTHENIA [None]
  - FORMICATION [None]
  - FATIGUE [None]
  - CHEST DISCOMFORT [None]
